FAERS Safety Report 12170670 (Version 3)
Quarter: 2016Q2

REPORT INFORMATION
  Report Type: Spontaneous
  Country: IT (occurrence: IT)
  Receive Date: 20160311
  Receipt Date: 20160407
  Transmission Date: 20160815
  Serious: Yes (Congenital Anomaly, Other)
  Sender: FDA-Public Use
  Company Number: IT-SUN PHARMACEUTICAL INDUSTRIES LTD-2016RR-112994

PATIENT
  Age: 0 Day
  Sex: Female
  Weight: 3 kg

DRUGS (2)
  1. BACLOFEN. [Suspect]
     Active Substance: BACLOFEN
     Indication: FOETAL EXPOSURE DURING PREGNANCY
     Dosage: 75 MG DAILY
     Route: 064
  2. GILENYA [Suspect]
     Active Substance: FINGOLIMOD HYDROCHLORIDE
     Indication: FOETAL EXPOSURE DURING PREGNANCY
     Dosage: .5 MG DAILY
     Route: 064

REACTIONS (4)
  - Otorrhoea [Recovering/Resolving]
  - Congenital megacolon [Unknown]
  - Ventricular hypertrophy [Recovering/Resolving]
  - Foetal exposure timing unspecified [Recovering/Resolving]

NARRATIVE: CASE EVENT DATE: 20151211
